FAERS Safety Report 7743410-7 (Version None)
Quarter: 2011Q3

REPORT INFORMATION
  Report Type: 
  Country: None (occurrence: None)
  Receive Date: 20110912
  Receipt Date: 20110901
  Transmission Date: 20111222
  Serious: Yes (Other)
  Sender: FDA-Public Use
  Company Number: FR-UCBSA-040601

PATIENT
  Sex: Male
  Weight: 2.7 kg

DRUGS (4)
  1. KEPPRA [Suspect]
     Route: 064
     Dates: start: 20110307, end: 20110818
  2. URBANYL [Concomitant]
     Indication: EPILEPSY
     Route: 064
     Dates: start: 20110505, end: 20110818
  3. KEPPRA [Suspect]
     Indication: EPILEPSY
     Route: 064
     Dates: start: 20100801
  4. SPECIAFOLDINE [Concomitant]
     Route: 064
     Dates: start: 20100701, end: 20110221

REACTIONS (4)
  - MATERNAL EXPOSURE DURING PREGNANCY [None]
  - HYPOTONIA [None]
  - POSTMATURE BABY [None]
  - DYSPHAGIA [None]
